FAERS Safety Report 16451377 (Version 1)
Quarter: 2019Q2

REPORT INFORMATION
  Report Type: Spontaneous
  Country: US (occurrence: US)
  Receive Date: 20190619
  Receipt Date: 20190619
  Transmission Date: 20190711
  Serious: No
  Sender: FDA-Public Use
  Company Number: US-PFIZER INC-2019258374

PATIENT
  Age: 70 Year
  Sex: Female
  Weight: 97.52 kg

DRUGS (2)
  1. TOVIAZ [Suspect]
     Active Substance: FESOTERODINE FUMARATE
     Dosage: 8 MG, DAILY
  2. TOVIAZ [Suspect]
     Active Substance: FESOTERODINE FUMARATE
     Indication: URINARY INCONTINENCE
     Dosage: 4 MG, DAILY (FOR 2 WEEKS )
     Dates: start: 201902

REACTIONS (3)
  - Micturition urgency [Not Recovered/Not Resolved]
  - Sneezing [Recovering/Resolving]
  - Cough [Recovering/Resolving]
